FAERS Safety Report 9197469 (Version 2)
Quarter: 2013Q2

REPORT INFORMATION
  Report Type: Spontaneous
  Country: US (occurrence: US)
  Receive Date: 20130328
  Receipt Date: 20130410
  Transmission Date: 20140414
  Serious: Yes (Death)
  Sender: FDA-Public Use
  Company Number: US-GILEAD-2013-0072525

PATIENT
  Age: 88 Year
  Sex: Female

DRUGS (3)
  1. LETAIRIS [Suspect]
     Indication: PULMONARY ARTERIAL HYPERTENSION
     Dosage: 5 MG, QD
     Route: 048
     Dates: start: 20121227
  2. LETAIRIS [Suspect]
     Indication: INTERSTITIAL LUNG DISEASE
  3. REVATIO [Concomitant]

REACTIONS (4)
  - Acute respiratory failure [Fatal]
  - Interstitial lung disease [Fatal]
  - Chronic obstructive pulmonary disease [Fatal]
  - Pulmonary hypertension [Fatal]
